FAERS Safety Report 25665369 (Version 1)
Quarter: 2025Q3

REPORT INFORMATION
  Report Type: Other
  Country: US (occurrence: US)
  Receive Date: 20250811
  Receipt Date: 20250811
  Transmission Date: 20251021
  Serious: Yes (Life-Threatening, Hospitalization, Other)
  Sender: COREPHARMA LLC
  Company Number: US-CorePharma LLC-2182258

PATIENT
  Age: 77 Year
  Sex: Female

DRUGS (3)
  1. DEXAMETHASONE [Suspect]
     Active Substance: DEXAMETHASONE
     Indication: Plasma cell myeloma
  2. CARFILZOMIB [Suspect]
     Active Substance: CARFILZOMIB
  3. POMALIDOMIDE [Suspect]
     Active Substance: POMALIDOMIDE

REACTIONS (6)
  - Acute respiratory failure [Recovering/Resolving]
  - Product use in unapproved indication [Unknown]
  - Alveolar proteinosis [Recovering/Resolving]
  - Pneumonia cytomegaloviral [Recovering/Resolving]
  - Pulmonary alveolar haemorrhage [Recovering/Resolving]
  - Pneumonitis [Recovering/Resolving]
